FAERS Safety Report 25825433 (Version 2)
Quarter: 2025Q4

REPORT INFORMATION
  Report Type: Report from Study
  Country: US (occurrence: US)
  Receive Date: 20250919
  Receipt Date: 20251023
  Transmission Date: 20260117
  Serious: Yes (Hospitalization, Other)
  Sender: GLAXOSMITHKLINE
  Company Number: US-GLAXOSMITHKLINE INC-US2025114484

PATIENT
  Age: 39 Year
  Sex: Female

DRUGS (1)
  1. BELIMUMAB [Suspect]
     Active Substance: BELIMUMAB
     Indication: Product used for unknown indication
     Dosage: UNK

REACTIONS (7)
  - Coma [Recovered/Resolved]
  - Hysterectomy [Unknown]
  - Hyperthermia malignant [Unknown]
  - Drug hypersensitivity [Unknown]
  - Blood potassium increased [Unknown]
  - Illness [Unknown]
  - Infection [Unknown]

NARRATIVE: CASE EVENT DATE: 20241123
